FAERS Safety Report 6329143-2 (Version None)
Quarter: 2009Q3

REPORT INFORMATION
  Report Type: 
  Country: None (occurrence: None)
  Receive Date: 20090826
  Receipt Date: 20090814
  Transmission Date: 20100115
  Serious: Yes (Other)
  Sender: FDA-Public Use
  Company Number: SG-ROCHE-650229

PATIENT
  Age: 10 Year
  Sex: Male
  Weight: 55 kg

DRUGS (2)
  1. TAMIFLU [Suspect]
     Indication: INFLUENZA
     Route: 048
     Dates: start: 20090807, end: 20090808
  2. PARACETAMOL [Concomitant]

REACTIONS (1)
  - NIGHTMARE [None]
